FAERS Safety Report 9088786 (Version 1)
Quarter: 2013Q1

REPORT INFORMATION
  Report Type: Spontaneous
  Country: US (occurrence: US)
  Receive Date: 20130131
  Receipt Date: 20130131
  Transmission Date: 20140127
  Serious: No
  Sender: FDA-Public Use
  Company Number: US-TEVA-383120USA

PATIENT
  Sex: Female
  Weight: 66.28 kg

DRUGS (12)
  1. NUVIGIL [Suspect]
     Indication: FATIGUE
  2. PROPRANOLOL [Concomitant]
  3. PAROXETINE [Concomitant]
  4. CARBAMAZEPINE [Concomitant]
  5. VITAMIN D [Concomitant]
  6. PANTOPRAZOLE [Concomitant]
  7. ZYRTEC [Concomitant]
  8. LORTAB [Concomitant]
  9. BACLOFEN [Concomitant]
     Dosage: TWICE DAILY
  10. RITALIN [Concomitant]
     Dosage: DAILY
  11. XANAX [Concomitant]
  12. DITROPAN [Concomitant]
     Indication: BLADDER DISORDER

REACTIONS (5)
  - Drug ineffective for unapproved indication [Unknown]
  - Fatigue [Unknown]
  - Nervousness [Recovered/Resolved]
  - Headache [Recovered/Resolved]
  - Off label use [Unknown]
